FAERS Safety Report 10967227 (Version 1)
Quarter: 2015Q1

REPORT INFORMATION
  Report Type: Spontaneous
  Country: US (occurrence: US)
  Receive Date: 20150330
  Receipt Date: 20150330
  Transmission Date: 20150721
  Serious: Yes (Hospitalization, Disabling)
  Sender: FDA-Public Use
  Company Number: US-DSJP-DSU-2015-109266

PATIENT

DRUGS (1)
  1. SAVAYSA [Suspect]
     Active Substance: EDOXABAN TOSYLATE
     Indication: ATRIAL FIBRILLATION
     Dosage: 60 MG, QD
     Route: 048
     Dates: start: 20150221, end: 20150321

REACTIONS (15)
  - Abasia [Unknown]
  - Pallor [Unknown]
  - Aphasia [Unknown]
  - Fatigue [Unknown]
  - Asthenia [Unknown]
  - Confusional state [Unknown]
  - Diplopia [Unknown]
  - Vomiting [Unknown]
  - Hypoaesthesia [Unknown]
  - Dyspnoea [Unknown]
  - Facial neuralgia [Unknown]
  - Back pain [Unknown]
  - Cough [Unknown]
  - Bladder disorder [Unknown]
  - Neck pain [Unknown]

NARRATIVE: CASE EVENT DATE: 2015
